FAERS Safety Report 8905419 (Version 2)
Quarter: 2012Q4

REPORT INFORMATION
  Report Type: 
  Country: US (occurrence: US)
  Receive Date: 20121113
  Receipt Date: 20121219
  Transmission Date: 20130627
  Serious: No
  Sender: FDA-Public Use
  Company Number: US-VERTEX PHARMACEUTICAL INC.-2012-024349

PATIENT
  Age: 56 Year
  Sex: Female
  Weight: 116.1 kg

DRUGS (11)
  1. INCIVEK [Suspect]
     Indication: HEPATITIS C
     Dosage: 750 mg, tid
     Route: 048
     Dates: start: 20120928
  2. RIBAVIRIN [Suspect]
     Indication: HEPATITIS C
     Dosage: 3 DF, bid
     Route: 048
     Dates: start: 20120928
  3. RIBAVIRIN [Suspect]
     Dosage: 2 DF, bid
  4. PEGASYS [Suspect]
     Indication: HEPATITIS C
     Dosage: 180 ?g, qw
     Route: 058
     Dates: start: 20120928
  5. PROCTOSOL HC [Concomitant]
     Dosage: 2.5 %, UNK
  6. PROZAC [Concomitant]
  7. XANAX [Concomitant]
  8. NEXUM [Concomitant]
  9. BENICAR [Concomitant]
  10. PREMARIN [Concomitant]
  11. HCT [Concomitant]

REACTIONS (2)
  - Rash macular [Not Recovered/Not Resolved]
  - Haemoglobin decreased [Unknown]
